FAERS Safety Report 5106669-0 (Version None)
Quarter: 2006Q3

REPORT INFORMATION
  Report Type: 
  Country: None (occurrence: None)
  Receive Date: 20060913
  Receipt Date: 20060830
  Transmission Date: 20061208
  Serious: No
  Sender: FDA-Public Use
  Company Number: CA200601003984

PATIENT
  Sex: Female

DRUGS (1)
  1. EVISTA [Suspect]

REACTIONS (1)
  - NO ADVERSE DRUG EFFECT [None]
